FAERS Safety Report 10100159 (Version 1)
Quarter: 2014Q2

REPORT INFORMATION
  Report Type: Spontaneous
  Country: US (occurrence: US)
  Receive Date: 20140423
  Receipt Date: 20140423
  Transmission Date: 20141212
  Serious: No
  Sender: FDA-Public Use
  Company Number: US-GILEAD-2013-0075406

PATIENT
  Age: 62 Year
  Sex: Female

DRUGS (8)
  1. LETAIRIS [Suspect]
     Indication: PULMONARY HYPERTENSION
     Dosage: 5 MG, QD
     Dates: start: 20130125
  2. ACARBOSE [Concomitant]
     Dosage: 25 MG, UNK
  3. METFORMIN [Concomitant]
     Dosage: 500 MG, UNK
  4. BUMEX [Concomitant]
     Dosage: 1 MG, UNK
  5. NADOLOL [Concomitant]
     Dosage: 20 MG, UNK
  6. GLYBURIDE [Concomitant]
     Dosage: 5 MG, UNK
  7. LEVEMIR [Concomitant]
     Dosage: UNK
  8. LEVOTHROID [Concomitant]
     Dosage: 112 ?G, UNK

REACTIONS (1)
  - Oedema peripheral [Unknown]
